FAERS Safety Report 12867718 (Version 1)
Quarter: 2016Q4

REPORT INFORMATION
  Report Type: Spontaneous
  Country: BR (occurrence: BR)
  Receive Date: 20161020
  Receipt Date: 20161020
  Transmission Date: 20170207
  Serious: Yes (Hospitalization)
  Sender: FDA-Public Use
  Company Number: BR-ELI_LILLY_AND_COMPANY-BR201610002388

PATIENT
  Sex: Female

DRUGS (9)
  1. HUMALOG [Suspect]
     Active Substance: INSULIN LISPRO
     Dosage: 10 IU, AT LUNCH
     Route: 063
     Dates: start: 20160623, end: 20160921
  2. HUMALOG [Suspect]
     Active Substance: INSULIN LISPRO
     Dosage: 12 IU, AT DINNER
     Route: 063
     Dates: start: 20160623, end: 20160921
  3. GLIFAGE [Concomitant]
     Active Substance: METFORMIN HYDROCHLORIDE
     Indication: DIABETES MELLITUS
     Dosage: UNK, UNKNOWN
     Route: 065
  4. HUMALOG [Suspect]
     Active Substance: INSULIN LISPRO
     Indication: DIABETES MELLITUS
     Dosage: 8 IU, AT BREAKFAST
     Route: 064
     Dates: start: 20160623, end: 20160921
  5. HUMALOG [Suspect]
     Active Substance: INSULIN LISPRO
     Dosage: 12 IU, AT DINNER
     Route: 064
     Dates: start: 20160623, end: 20160921
  6. HUMALOG [Suspect]
     Active Substance: INSULIN LISPRO
     Dosage: 10 IU, AT LUNCH
     Route: 064
     Dates: start: 20160623, end: 20160921
  7. HUMULIN N [Suspect]
     Active Substance: INSULIN HUMAN
     Dosage: 20 IU, AT NIGHT
     Route: 063
     Dates: start: 20160623, end: 20160921
  8. HUMALOG [Suspect]
     Active Substance: INSULIN LISPRO
     Dosage: 8 IU, AT BREAKFAST
     Route: 063
     Dates: start: 20160623, end: 20160921
  9. HUMULIN N [Suspect]
     Active Substance: INSULIN HUMAN
     Indication: DIABETES MELLITUS
     Dosage: 20 IU, AT NIGHT
     Route: 064
     Dates: start: 20160623, end: 20160921

REACTIONS (5)
  - Exposure during breast feeding [Unknown]
  - Neonatal respiratory depression [Recovered/Resolved]
  - Foetal exposure during pregnancy [Recovered/Resolved]
  - Premature baby [Unknown]
  - Neonatal pneumonia [Recovered/Resolved]
